FAERS Safety Report 23944887 (Version 1)
Quarter: 2024Q2

REPORT INFORMATION
  Report Type: Spontaneous
  Country: GB (occurrence: GB)
  Receive Date: 20240606
  Receipt Date: 20240606
  Transmission Date: 20240715
  Serious: Yes (Other)
  Sender: FDA-Public Use
  Company Number: None

PATIENT
  Age: 24 Year
  Sex: Female
  Weight: 53 kg

DRUGS (1)
  1. ALLOPURINOL [Suspect]
     Active Substance: ALLOPURINOL
     Indication: Nephrolithiasis
     Dosage: AT MORNING,
     Route: 065
     Dates: start: 20240420, end: 20240524

REACTIONS (8)
  - Rash erythematous [Recovering/Resolving]
  - Throat tightness [Recovered/Resolved]
  - Skin exfoliation [Recovering/Resolving]
  - Pyrexia [Recovered/Resolved]
  - Asthenia [Recovering/Resolving]
  - Vomiting [Recovered/Resolved]
  - Syncope [Recovered/Resolved]
  - Chills [Recovered/Resolved]

NARRATIVE: CASE EVENT DATE: 20240524
